FAERS Safety Report 5980659-8 (Version None)
Quarter: 2008Q4

REPORT INFORMATION
  Report Type: 
  Country: None (occurrence: None)
  Receive Date: 20081205
  Receipt Date: 20080303
  Transmission Date: 20090506
  Serious: No
  Sender: FDA-Public Use
  Company Number: A0712874A

PATIENT
  Age: 36 Year
  Sex: Male

DRUGS (6)
  1. COMMIT [Suspect]
  2. COMMIT [Suspect]
  3. COMMIT [Suspect]
  4. NICOTINE [Suspect]
  5. NICORETTE [Suspect]
  6. SENSODYNE-F [Suspect]

REACTIONS (11)
  - ABNORMAL DREAMS [None]
  - APHTHOUS STOMATITIS [None]
  - DRUG INEFFECTIVE [None]
  - FEELING ABNORMAL [None]
  - GINGIVAL PAIN [None]
  - GINGIVAL RECESSION [None]
  - INTENTIONAL DRUG MISUSE [None]
  - NICOTINE DEPENDENCE [None]
  - ORAL PAIN [None]
  - SENSITIVITY OF TEETH [None]
  - TOOTHACHE [None]
